FAERS Safety Report 17573706 (Version 1)
Quarter: 2020Q1

REPORT INFORMATION
  Report Type: Report from Study
  Country: JP (occurrence: JP)
  Receive Date: 20200323
  Receipt Date: 20200323
  Transmission Date: 20200409
  Serious: Yes (Other)
  Sender: FDA-Public Use
  Company Number: JP-PFIZER INC-2020109153

PATIENT
  Age: 11 Year
  Sex: Female
  Weight: 33.8 kg

DRUGS (8)
  1. PRECEDEX [Suspect]
     Active Substance: DEXMEDETOMIDINE HYDROCHLORIDE
     Dosage: 0.23 MCG/KG/HOUR
     Route: 042
     Dates: start: 20200107, end: 20200107
  2. PRECEDEX [Suspect]
     Active Substance: DEXMEDETOMIDINE HYDROCHLORIDE
     Dosage: 0.36 MCG/KG/HOUR
     Route: 042
     Dates: start: 20200110, end: 20200111
  3. PRECEDEX [Suspect]
     Active Substance: DEXMEDETOMIDINE HYDROCHLORIDE
     Dosage: 0.47 MCG/KG/HOUR
     Route: 042
     Dates: start: 20200110, end: 20200110
  4. PRECEDEX [Suspect]
     Active Substance: DEXMEDETOMIDINE HYDROCHLORIDE
     Dosage: UNK (REDUCED)
     Route: 042
     Dates: start: 20200111, end: 20200111
  5. PRECEDEX [Suspect]
     Active Substance: DEXMEDETOMIDINE HYDROCHLORIDE
     Dosage: 0.47 MCG/KG/HOUR
     Route: 042
     Dates: start: 20200111, end: 20200111
  6. PRECEDEX [Suspect]
     Active Substance: DEXMEDETOMIDINE HYDROCHLORIDE
     Indication: SEDATION
     Dosage: PREFILLED SYRINGE 4 MCG/ML AT A RATE OF 0.47 MCG/KG/HOUR
     Route: 042
     Dates: start: 20200106, end: 20200107
  7. PRECEDEX [Suspect]
     Active Substance: DEXMEDETOMIDINE HYDROCHLORIDE
     Dosage: 0.23 MCG/KG/HOUR
     Route: 042
     Dates: start: 20200110, end: 20200110
  8. PRECEDEX [Suspect]
     Active Substance: DEXMEDETOMIDINE HYDROCHLORIDE
     Dosage: 0.73 MCG/KG/HOUR
     Route: 042
     Dates: start: 20200111, end: 20200111

REACTIONS (1)
  - Status epilepticus [Recovered/Resolved]

NARRATIVE: CASE EVENT DATE: 20200107
